FAERS Safety Report 10180940 (Version 1)
Quarter: 2014Q2

REPORT INFORMATION
  Report Type: Spontaneous
  Country: US (occurrence: US)
  Receive Date: 20140519
  Receipt Date: 20140519
  Transmission Date: 20141212
  Serious: No
  Sender: FDA-Public Use
  Company Number: US-AMGEN INC.-USASP2014004615

PATIENT
  Age: 86 Year
  Sex: Female

DRUGS (5)
  1. PROLIA [Suspect]
     Indication: PRODUCT USED FOR UNKNOWN INDICATION
     Dosage: UNK
     Route: 065
     Dates: start: 20130824
  2. CRESTOR [Concomitant]
     Dosage: UNK
     Route: 065
  3. CALCIUM + VITAMIN D                /01483701/ [Concomitant]
     Dosage: 1200 MG, UNK
     Route: 065
  4. VITAMIN D                          /00107901/ [Concomitant]
     Dosage: 1000 IU, UNK
     Route: 065
  5. MULTIVITAMIN                       /00097801/ [Concomitant]
     Dosage: UNK
     Route: 065

REACTIONS (5)
  - Pruritus [Unknown]
  - Myalgia [Unknown]
  - Back pain [Unknown]
  - Eczema [Unknown]
  - Rash [Unknown]
